FAERS Safety Report 21599141 (Version 1)
Quarter: 2022Q4

REPORT INFORMATION
  Report Type: Report from Study
  Country: CN (occurrence: CN)
  Receive Date: 20221115
  Receipt Date: 20221115
  Transmission Date: 20230113
  Serious: Yes (Hospitalization)
  Sender: FDA-Public Use
  Company Number: CN-ABBVIE-4134679

PATIENT
  Age: 53 Year
  Sex: Male
  Weight: 62.5 kg

DRUGS (11)
  1. VENETOCLAX [Suspect]
     Active Substance: VENETOCLAX
     Indication: Acute myeloid leukaemia
     Dosage: ONCE
     Route: 048
     Dates: start: 20220901, end: 20220901
  2. VENETOCLAX [Suspect]
     Active Substance: VENETOCLAX
     Indication: Acute myeloid leukaemia
     Dosage: ONCE
     Route: 048
     Dates: start: 20220902, end: 20220902
  3. VENETOCLAX [Suspect]
     Active Substance: VENETOCLAX
     Indication: Acute myeloid leukaemia
     Dosage: ONCE
     Route: 048
     Dates: start: 20220903, end: 20220903
  4. VENETOCLAX [Suspect]
     Active Substance: VENETOCLAX
     Indication: Acute myeloid leukaemia
     Route: 048
     Dates: start: 20220904, end: 20220928
  5. VENETOCLAX [Suspect]
     Active Substance: VENETOCLAX
     Indication: Acute myeloid leukaemia
     Route: 048
     Dates: start: 20221012
  6. AZACITIDINE [Suspect]
     Active Substance: AZACITIDINE
     Indication: Acute myeloid leukaemia
     Route: 058
     Dates: start: 20220901, end: 20220907
  7. AZACITIDINE [Suspect]
     Active Substance: AZACITIDINE
     Indication: Acute myeloid leukaemia
     Route: 058
     Dates: start: 20221012
  8. POTASSIUM CHLORIDE SUSTAINED-RELEASE TABLETS [Concomitant]
     Indication: Hypokalaemia
     Dosage: TIME INTERVAL: 0.33333333 DAYS
     Route: 048
     Dates: start: 20220818
  9. MAGNESIUM ISOGLYCYRRHIZINATE INJECTION [Concomitant]
     Indication: Hepatic failure
     Route: 041
     Dates: start: 20220821
  10. PIPERACILLIN SODIUM AND TAZOBACTAM SODIUM FOR?INJECTION [Concomitant]
     Indication: Pneumonia
     Dosage: TIME INTERVAL: 0.33333333 DAYS
     Route: 041
     Dates: start: 20220824
  11. ETAMSYLATE INJECTION [Concomitant]
     Indication: Haemorrhage prophylaxis
     Route: 041
     Dates: start: 20220818

REACTIONS (1)
  - Myelosuppression [Recovered/Resolved]

NARRATIVE: CASE EVENT DATE: 20220930
